FAERS Safety Report 8814457 (Version 3)
Quarter: 2012Q4

REPORT INFORMATION
  Report Type: 
  Country: US (occurrence: US)
  Receive Date: 20120928
  Receipt Date: 20121226
  Transmission Date: 20130627
  Serious: Yes (Hospitalization)
  Sender: FDA-Public Use
  Company Number: US-PFIZER INC-2012238477

PATIENT
  Age: 61 Year
  Sex: Male
  Weight: 89.34 kg

DRUGS (11)
  1. EFFEXOR XR [Suspect]
     Indication: ANXIETY
     Dosage: 150 mg, 2x/day
  2. EFFEXOR XR [Suspect]
     Indication: DEPRESSION
  3. NORVASC [Suspect]
     Indication: BLOOD PRESSURE HIGH
     Dosage: 5 mg, daily
  4. METFORMIN [Concomitant]
     Indication: DIABETES
     Dosage: 500 mg, 2x/day
  5. LISINOPRIL [Concomitant]
     Indication: BLOOD PRESSURE HIGH
     Dosage: 12.5 mg, 2x/day
  6. SOTALOL [Concomitant]
     Indication: ARRHYTHMIA
     Dosage: 25 mg, 2x/day
  7. ASPIRI [Concomitant]
     Dosage: UNK
  8. CRESTOR [Concomitant]
     Indication: HIGH CHOLESTEROL
     Dosage: UNK
  9. NEXIUM [Concomitant]
     Indication: GASTRIC DISORDER
     Dosage: UNK
  10. SYNTHROID [Concomitant]
     Indication: THYROID DISORDER
     Dosage: UNK
  11. VALIUM [Concomitant]
     Indication: ANXIETY
     Dosage: UNK

REACTIONS (3)
  - Atrial fibrillation [Recovering/Resolving]
  - Cerebral disorder [Recovering/Resolving]
  - Coronary artery disease [Unknown]
